FAERS Safety Report 21396337 (Version 1)
Quarter: 2022Q3

REPORT INFORMATION
  Report Type: Spontaneous
  Country: CA (occurrence: CA)
  Receive Date: 20220930
  Receipt Date: 20220930
  Transmission Date: 20221027
  Serious: Yes (Other)
  Sender: FDA-Public Use
  Company Number: CA-ALLERGAN-2231187US

PATIENT
  Age: 58 Year
  Sex: Female

DRUGS (3)
  1. ACITRETIN [Suspect]
     Active Substance: ACITRETIN
     Indication: Pityriasis rubra pilaris
     Dosage: 20 MILLIGRAM DAILY; 20 MG, QD
     Route: 048
  2. ACITRETIN [Suspect]
     Active Substance: ACITRETIN
     Dosage: 10 MILLIGRAM DAILY; 10 MG, QD
     Route: 048
  3. BETAMETHASONE [Suspect]
     Active Substance: BETAMETHASONE
     Indication: Pityriasis rubra pilaris
     Dosage: 2 DOSAGE FORMS DAILY; 2 DF, QD
     Route: 065

REACTIONS (6)
  - Chills [Unknown]
  - Dermatitis exfoliative generalised [Unknown]
  - Disease progression [Unknown]
  - Pruritus [Unknown]
  - Skin tightness [Unknown]
  - Sticky skin [Unknown]
